FAERS Safety Report 13261636 (Version 1)
Quarter: 2017Q1

REPORT INFORMATION
  Report Type: Report from Study
  Country: VE (occurrence: VE)
  Receive Date: 20170222
  Receipt Date: 20170222
  Transmission Date: 20170428
  Serious: Yes (Hospitalization, Other)
  Sender: FDA-Public Use
  Company Number: PHHY2017VE023391

PATIENT
  Sex: Male

DRUGS (2)
  1. FOLIC ACID. [Concomitant]
     Active Substance: FOLIC ACID
     Indication: SICKLE CELL ANAEMIA
     Dosage: 10 MG, QD
     Route: 065
  2. EXJADE [Suspect]
     Active Substance: DEFERASIROX
     Indication: SICKLE CELL ANAEMIA
     Dosage: 500 MG, QD
     Route: 048
     Dates: start: 201606, end: 201611

REACTIONS (8)
  - Cellulitis [Unknown]
  - Sickle cell anaemia with crisis [Unknown]
  - Pain [Unknown]
  - Localised infection [Unknown]
  - Osteomyelitis [Unknown]
  - Bacterial infection [Unknown]
  - Serum ferritin increased [Unknown]
  - Respiratory tract infection [Unknown]
